FAERS Safety Report 8652702 (Version 5)
Quarter: 2014Q1

REPORT INFORMATION
  Report Type: Report from Study
  Country: AU (occurrence: AU)
  Receive Date: 20120706
  Receipt Date: 20140228
  Transmission Date: 20141002
  Serious: Yes (Other)
  Sender: FDA-Public Use
  Company Number: AU-ROCHE-1084726

PATIENT
  Age: 49 Year
  Sex: Female
  Weight: 61 kg

DRUGS (7)
  1. ACTEMRA [Suspect]
     Indication: RHEUMATOID ARTHRITIS
     Dosage: VOLUME OF INFUSION 28 MG OR ML
     Route: 042
     Dates: start: 20120607, end: 20140113
  2. ACTEMRA [Suspect]
     Route: 042
  3. SOMAC [Concomitant]
     Route: 065
     Dates: start: 20120629
  4. SOMAC [Concomitant]
     Route: 065
     Dates: start: 20120629
  5. COVASTIN [Concomitant]
     Indication: MENOPAUSE
     Route: 065
  6. QVAR [Concomitant]
     Route: 065
  7. BION TEARS [Concomitant]

REACTIONS (7)
  - Oropharyngeal pain [Not Recovered/Not Resolved]
  - Cough [Not Recovered/Not Resolved]
  - Lower respiratory tract infection [Recovered/Resolved]
  - Abdominal pain upper [Not Recovered/Not Resolved]
  - Musculoskeletal chest pain [Not Recovered/Not Resolved]
  - Sinusitis [Unknown]
  - Upper respiratory tract infection [Recovering/Resolving]
